FAERS Safety Report 7303894-5 (Version None)
Quarter: 2011Q1

REPORT INFORMATION
  Report Type: 
  Country: None (occurrence: None)
  Receive Date: 20110221
  Receipt Date: 20110215
  Transmission Date: 20110831
  Serious: Yes (Other)
  Sender: FDA-Public Use
  Company Number: B0700794A

PATIENT
  Sex: Male

DRUGS (1)
  1. AVOLVE [Suspect]
     Dosage: .5MG PER DAY
     Route: 048
     Dates: start: 20101101

REACTIONS (3)
  - BLADDER TAMPONADE [None]
  - PROSTATIC HAEMORRHAGE [None]
  - HAEMATURIA [None]
